FAERS Safety Report 4494204-X (Version None)
Quarter: 2004Q4

REPORT INFORMATION
  Report Type: 
  Country: None (occurrence: None)
  Receive Date: 20041105
  Receipt Date: 20041101
  Transmission Date: 20050328
  Serious: Yes (Hospitalization)
  Sender: FDA-Public Use
  Company Number: US-ROCHE-385316

PATIENT
  Sex: Male

DRUGS (2)
  1. XENICAL [Suspect]
     Indication: DRUG USE FOR UNKNOWN INDICATION
     Route: 048
     Dates: start: 20041026
  2. UNSPECIFIED OTHER MEDICATION [Concomitant]

REACTIONS (3)
  - HYPOCHLORAEMIA [None]
  - HYPONATRAEMIA [None]
  - MENTAL STATUS CHANGES [None]
